FAERS Safety Report 4356290-7 (Version None)
Quarter: 2004Q2

REPORT INFORMATION
  Report Type: 
  Country: None (occurrence: None)
  Receive Date: 20040511
  Receipt Date: 20040511
  Transmission Date: 20050107
  Serious: No
  Sender: FDA-Public Use
  Company Number: None

PATIENT
  Age: 62 Year
  Sex: Female
  Weight: 72.5755 kg

DRUGS (3)
  1. CHOLESTYRAMINE [Suspect]
     Indication: DIARRHOEA
     Dosage: 4 GM POWDER BID ORAL
     Route: 048
     Dates: start: 20040401, end: 20040402
  2. CHOLESTYRAMINE [Suspect]
     Indication: GASTROINTESTINAL DISORDER
     Dosage: 4 GM POWDER BID ORAL
     Route: 048
     Dates: start: 20040401, end: 20040402
  3. LOPERAMIDE HCL [Concomitant]

REACTIONS (3)
  - MEDICATION ERROR [None]
  - OBSTRUCTIVE AIRWAYS DISORDER [None]
  - PHARMACEUTICAL PRODUCT COMPLAINT [None]
